FAERS Safety Report 6579113-4 (Version None)
Quarter: 2010Q1

REPORT INFORMATION
  Report Type: 
  Country: None (occurrence: None)
  Receive Date: 20100212
  Receipt Date: 20100203
  Transmission Date: 20100710
  Serious: Yes (Hospitalization)
  Sender: FDA-Public Use
  Company Number: US-ASTRAZENECA-2009SE29444

PATIENT
  Age: 71 Year
  Sex: Female
  Weight: 61.3 kg

DRUGS (9)
  1. PRILOSEC [Suspect]
     Indication: ABDOMINAL DISCOMFORT
     Route: 048
     Dates: start: 20090910
  2. DOUBLE-BLINDED STUDY DRUG [Suspect]
     Route: 048
     Dates: start: 20091006, end: 20091030
  3. DOUBLE-BLINDED STUDY DRUG [Suspect]
     Route: 048
     Dates: start: 20091113
  4. WHOLE BRAIN RADIATION THERAPY [Suspect]
     Dosage: FOUR TIMES A DAY, FIVE DAYS A WEEK, FOR A THREE WEEK PERIOD
     Dates: start: 20091002, end: 20091022
  5. ATIVAN [Suspect]
     Indication: INSOMNIA
     Dates: start: 20090929
  6. ATIVAN [Suspect]
     Dates: start: 20091002
  7. DARVOCET [Suspect]
     Indication: PAIN
     Dosage: 100 MG EVERY 4 HOURS AS NEEDED
     Route: 048
     Dates: start: 20091028
  8. DECADRON [Suspect]
     Indication: LUNG NEOPLASM MALIGNANT
     Dates: start: 20090929
  9. DECADRON [Suspect]
     Indication: METASTASES TO CENTRAL NERVOUS SYSTEM
     Dates: start: 20090929

REACTIONS (3)
  - DEHYDRATION [None]
  - FATIGUE [None]
  - WEIGHT DECREASED [None]
